FAERS Safety Report 13302402 (Version 2)
Quarter: 2017Q1

REPORT INFORMATION
  Report Type: Spontaneous
  Country: JP (occurrence: JP)
  Receive Date: 20170307
  Receipt Date: 20170317
  Transmission Date: 20170428
  Serious: Yes (Other)
  Sender: FDA-Public Use
  Company Number: JP-PFIZER INC-2017090282

PATIENT

DRUGS (1)
  1. INLYTA [Suspect]
     Active Substance: AXITINIB
     Indication: RENAL CANCER
     Dosage: UNK
     Route: 048
     Dates: start: 201702, end: 2017

REACTIONS (3)
  - Condition aggravated [Unknown]
  - Neoplasm progression [Unknown]
  - Haemorrhagic ascites [Unknown]

NARRATIVE: CASE EVENT DATE: 2017
